FAERS Safety Report 7629983-3 (Version None)
Quarter: 2011Q3

REPORT INFORMATION
  Report Type: 
  Country: None (occurrence: None)
  Receive Date: 20110722
  Receipt Date: 20110719
  Transmission Date: 20111222
  Serious: Yes (Life-Threatening)
  Sender: FDA-Public Use
  Company Number: DE-MERCK-1106DEU00029

PATIENT
  Age: 76 Year
  Sex: Female
  Weight: 63 kg

DRUGS (5)
  1. ATENOLOL AND NIFEDIPINE [Concomitant]
     Indication: HYPERTENSION
     Route: 048
  2. JANUMET [Suspect]
     Route: 048
     Dates: start: 20101115, end: 20110407
  3. ALENDRONIC ACID [Concomitant]
     Indication: OSTEOPOROSIS
     Route: 048
  4. ENALAPRIL MALEATE [Concomitant]
     Indication: HYPERTENSION
     Route: 048
  5. CALCIUM CITRATE AND CHOLECALCIFEROL [Concomitant]
     Route: 048

REACTIONS (2)
  - TRANSAMINASES INCREASED [None]
  - HEPATITIS C [None]
